FAERS Safety Report 17641618 (Version 3)
Quarter: 2020Q3

REPORT INFORMATION
  Report Type: Report from Study
  Country: GB (occurrence: GB)
  Receive Date: 20200407
  Receipt Date: 20200708
  Transmission Date: 20201102
  Serious: Yes (Other)
  Sender: FDA-Public Use
  Company Number: NVSC2020GB093814

PATIENT
  Age: 10 Year
  Sex: Male
  Weight: 25.2 kg

DRUGS (1)
  1. SOMATROPIN. [Suspect]
     Active Substance: SOMATROPIN
     Indication: SMALL FOR DATES BABY
     Dosage: 0.7 MG, QD (10 MG/1.5 MG SOLUTION FOR INJECTION)
     Route: 058
     Dates: start: 20160422, end: 20171024

REACTIONS (3)
  - Osteonecrosis [Recovered/Resolved]
  - Arthralgia [Recovering/Resolving]
  - Condition aggravated [Unknown]

NARRATIVE: CASE EVENT DATE: 20170127
